FAERS Safety Report 9791659 (Version 1)
Quarter: 2014Q1

REPORT INFORMATION
  Report Type: Report from Study
  Country: US (occurrence: US)
  Receive Date: 20140102
  Receipt Date: 20140102
  Transmission Date: 20141002
  Serious: Yes (Other)
  Sender: FDA-Public Use
  Company Number: US-ROCHE-1315936

PATIENT
  Sex: Female

DRUGS (11)
  1. AVASTIN [Suspect]
     Indication: BREAST CANCER METASTATIC
     Route: 065
     Dates: end: 200802
  2. AVASTIN [Suspect]
     Route: 065
     Dates: start: 200911
  3. NAVELBINE [Suspect]
     Indication: BREAST CANCER METASTATIC
     Route: 065
  4. AROMASIN [Concomitant]
     Route: 065
     Dates: start: 20090904
  5. ABRAXANE [Concomitant]
     Route: 065
     Dates: start: 200911
  6. FASLODEX [Concomitant]
     Route: 065
     Dates: start: 20090820
  7. ZOMETA [Concomitant]
     Route: 065
     Dates: start: 20090820
  8. TAMOXIFEN [Concomitant]
  9. METHOTREXATE [Concomitant]
     Route: 048
  10. CYTOXAN [Concomitant]
     Route: 048
  11. LUPRON [Concomitant]

REACTIONS (5)
  - Metastases to peritoneum [Unknown]
  - Hepatic lesion [Unknown]
  - Disease progression [Unknown]
  - Fatigue [Unknown]
  - Neuropathy peripheral [Unknown]
